FAERS Safety Report 14089873 (Version 1)
Quarter: 2017Q4

REPORT INFORMATION
  Report Type: Spontaneous
  Country: US (occurrence: US)
  Receive Date: 20171014
  Receipt Date: 20171014
  Transmission Date: 20180321
  Serious: No
  Sender: FDA-Public Use
  Company Number: US-SA-2017SA172016

PATIENT
  Age: 40 Year
  Sex: Female

DRUGS (7)
  1. LATUDA [Concomitant]
     Active Substance: LURASIDONE HYDROCHLORIDE
  2. MODAFINIL. [Concomitant]
     Active Substance: MODAFINIL
  3. LAMOTRIGINE. [Concomitant]
     Active Substance: LAMOTRIGINE
  4. GABAPENTIN. [Concomitant]
     Active Substance: GABAPENTIN
  5. LAMICTAL [Concomitant]
     Active Substance: LAMOTRIGINE
  6. AUBAGIO [Suspect]
     Active Substance: TERIFLUNOMIDE
     Indication: MULTIPLE SCLEROSIS
     Route: 048
  7. ZOLPIDEM TARTRATE. [Concomitant]
     Active Substance: ZOLPIDEM TARTRATE

REACTIONS (3)
  - Headache [Unknown]
  - Fatigue [Unknown]
  - Depression [Unknown]
